FAERS Safety Report 4610430-0 (Version None)
Quarter: 2005Q1

REPORT INFORMATION
  Report Type: 
  Country: None (occurrence: None)
  Receive Date: 20050314
  Receipt Date: 20050304
  Transmission Date: 20050727
  Serious: Yes (Hospitalization, Other)
  Sender: FDA-Public Use
  Company Number: 2005-02-1362

PATIENT
  Sex: Female

DRUGS (4)
  1. TEMODAR [Suspect]
     Indication: GLIOBLASTOMA MULTIFORME
     Dosage: ORAL
     Route: 048
     Dates: start: 20041101, end: 20041201
  2. KEPPRA [Suspect]
     Indication: CONVULSION PROPHYLAXIS
     Dosage: ORAL
     Route: 048
     Dates: start: 20040801
  3. RADIATION THERAPY [Concomitant]
  4. GLIOBLASTOMA MULTIFORME [Concomitant]

REACTIONS (8)
  - APLASTIC ANAEMIA [None]
  - BONE DISORDER [None]
  - BONE MARROW DEPRESSION [None]
  - DIZZINESS [None]
  - HEPATIC ENZYME INCREASED [None]
  - PANCYTOPENIA [None]
  - POST PROCEDURAL COMPLICATION [None]
  - SYNCOPE [None]
